FAERS Safety Report 7978110-1 (Version None)
Quarter: 2011Q4

REPORT INFORMATION
  Report Type: 
  Country: None (occurrence: None)
  Receive Date: 20111209
  Receipt Date: 20111128
  Transmission Date: 20120403
  Serious: Yes (Other)
  Sender: FDA-Public Use
  Company Number: DSA_48323_2011

PATIENT
  Age: 79 Year
  Sex: Male

DRUGS (3)
  1. AMANTADINE HCL [Concomitant]
  2. ASPIRIN [Concomitant]
  3. WELLBUTRIN XL [Suspect]
     Indication: DEPRESSION
     Dosage: 150 MG, FREQUENCY UNKNOWN ORAL; 300 MG QD ORAL
     Route: 048
     Dates: start: 20110917, end: 20110925

REACTIONS (4)
  - CONVULSION [None]
  - DRUG INEFFECTIVE [None]
  - DRUG INTOLERANCE [None]
  - DIZZINESS [None]
